FAERS Safety Report 25392007 (Version 2)
Quarter: 2025Q2

REPORT INFORMATION
  Report Type: Spontaneous
  Country: US (occurrence: US)
  Receive Date: 20250603
  Receipt Date: 20250609
  Transmission Date: 20250717
  Serious: Yes (Other)
  Sender: ELI LILLY AND COMPANY
  Company Number: US-ELI_LILLY_AND_COMPANY-US202505024726

PATIENT
  Age: 42 Year
  Sex: Female

DRUGS (20)
  1. MOUNJARO [Suspect]
     Active Substance: TIRZEPATIDE
     Indication: Latent autoimmune diabetes in adults
     Route: 058
     Dates: start: 2023
  2. MOUNJARO [Suspect]
     Active Substance: TIRZEPATIDE
     Indication: Latent autoimmune diabetes in adults
     Route: 058
     Dates: start: 2023
  3. MOUNJARO [Suspect]
     Active Substance: TIRZEPATIDE
     Indication: Latent autoimmune diabetes in adults
     Route: 058
     Dates: start: 2023
  4. MOUNJARO [Suspect]
     Active Substance: TIRZEPATIDE
     Indication: Latent autoimmune diabetes in adults
     Route: 058
     Dates: start: 2023
  5. MOUNJARO [Suspect]
     Active Substance: TIRZEPATIDE
     Route: 058
     Dates: end: 202312
  6. MOUNJARO [Suspect]
     Active Substance: TIRZEPATIDE
     Route: 058
     Dates: end: 202312
  7. MOUNJARO [Suspect]
     Active Substance: TIRZEPATIDE
     Route: 058
     Dates: end: 202312
  8. MOUNJARO [Suspect]
     Active Substance: TIRZEPATIDE
     Route: 058
     Dates: end: 202312
  9. MOUNJARO [Suspect]
     Active Substance: TIRZEPATIDE
     Indication: Latent autoimmune diabetes in adults
     Route: 058
     Dates: start: 202412
  10. MOUNJARO [Suspect]
     Active Substance: TIRZEPATIDE
     Indication: Latent autoimmune diabetes in adults
     Route: 058
     Dates: start: 202412
  11. MOUNJARO [Suspect]
     Active Substance: TIRZEPATIDE
     Indication: Latent autoimmune diabetes in adults
     Route: 058
     Dates: start: 202412
  12. MOUNJARO [Suspect]
     Active Substance: TIRZEPATIDE
     Indication: Latent autoimmune diabetes in adults
     Route: 058
     Dates: start: 202412
  13. MOUNJARO [Suspect]
     Active Substance: TIRZEPATIDE
     Indication: Latent autoimmune diabetes in adults
     Route: 058
     Dates: start: 202412
  14. MOUNJARO [Suspect]
     Active Substance: TIRZEPATIDE
     Route: 058
  15. MOUNJARO [Suspect]
     Active Substance: TIRZEPATIDE
     Route: 058
  16. MOUNJARO [Suspect]
     Active Substance: TIRZEPATIDE
     Route: 058
  17. MOUNJARO [Suspect]
     Active Substance: TIRZEPATIDE
     Route: 058
  18. MOUNJARO [Suspect]
     Active Substance: TIRZEPATIDE
     Route: 058
  19. HUMALOG [Suspect]
     Active Substance: INSULIN LISPRO
     Indication: Product used for unknown indication
     Route: 065
  20. HUMALOG [Suspect]
     Active Substance: INSULIN LISPRO
     Route: 065

REACTIONS (5)
  - Abortion spontaneous [Recovered/Resolved]
  - Off label use [Unknown]
  - Maternal exposure during pregnancy [Recovered/Resolved]
  - Extra dose administered [Unknown]
  - Incorrect dose administered [Unknown]

NARRATIVE: CASE EVENT DATE: 20230101
